FAERS Safety Report 21244862 (Version 7)
Quarter: 2022Q4

REPORT INFORMATION
  Report Type: Report from Study
  Country: NL (occurrence: None)
  Receive Date: 20220823
  Receipt Date: 20221003
  Transmission Date: 20230113
  Serious: Yes (Hospitalization)
  Sender: FDA-Public Use
  Company Number: NL-Eisai Medical Research-EC-2022-120493

PATIENT
  Age: 58 Year
  Sex: Female
  Weight: 67.3 kg

DRUGS (20)
  1. LENVATINIB [Suspect]
     Active Substance: LENVATINIB
     Indication: Gallbladder adenocarcinoma
     Route: 048
     Dates: start: 20220715, end: 20220728
  2. LENVATINIB [Suspect]
     Active Substance: LENVATINIB
     Route: 048
     Dates: start: 20220805, end: 20220818
  3. PEMBROLIZUMAB [Suspect]
     Active Substance: PEMBROLIZUMAB
     Indication: Gallbladder adenocarcinoma
     Route: 042
     Dates: start: 20220715, end: 20220715
  4. BELZUTIFAN [Suspect]
     Active Substance: BELZUTIFAN
     Indication: Gallbladder adenocarcinoma
     Route: 048
     Dates: start: 20220715, end: 20220728
  5. SULFASALAZINE [Concomitant]
     Active Substance: SULFASALAZINE
     Dates: start: 202204
  6. PREDNISOLONE [Concomitant]
     Active Substance: PREDNISOLONE
     Dates: start: 20220622, end: 20220720
  7. ACETAMINOPHEN [Concomitant]
     Active Substance: ACETAMINOPHEN
     Dates: start: 20220622
  8. MAGNESIUM [Concomitant]
     Active Substance: MAGNESIUM
     Dates: start: 20220622
  9. ASCORBIC ACID [Concomitant]
     Active Substance: ASCORBIC ACID
     Dates: start: 20220622
  10. VITAMIN D NOS [Concomitant]
     Active Substance: VITAMIN D NOS
     Dates: start: 20220622
  11. FENTANYL [Concomitant]
     Active Substance: FENTANYL
     Dates: start: 20220701, end: 20220727
  12. AMLODIPINE [Concomitant]
     Active Substance: AMLODIPINE BESYLATE
     Dates: start: 20220704, end: 20220830
  13. OXYCODONE HYDROCHLORIDE [Concomitant]
     Active Substance: OXYCODONE HYDROCHLORIDE
     Dates: start: 20220705
  14. METOCLOPRAMIDE [Concomitant]
     Active Substance: METOCLOPRAMIDE
     Dates: start: 20220708
  15. SODIUM LAURYL SULFOACETATE [Concomitant]
     Active Substance: SODIUM LAURYL SULFOACETATE
     Dates: start: 20220709
  16. POLYETHYLENE GLYCOLS [Concomitant]
     Active Substance: POLYETHYLENE GLYCOLS
     Dates: start: 20220709, end: 20220828
  17. BISACODYL [Concomitant]
     Active Substance: BISACODYL
     Dates: start: 20220712, end: 20220714
  18. DICLOFENAC [Concomitant]
     Active Substance: DICLOFENAC
     Dates: start: 20220716, end: 20220717
  19. OMEPRAZOLE [Concomitant]
     Active Substance: OMEPRAZOLE
     Dates: start: 20220716, end: 20220821
  20. PREDNISONE [Concomitant]
     Active Substance: PREDNISONE
     Dates: start: 20220721, end: 20220814

REACTIONS (3)
  - Urinary tract infection [Recovered/Resolved]
  - Hypoxia [Not Recovered/Not Resolved]
  - Abdominal pain [Not Recovered/Not Resolved]

NARRATIVE: CASE EVENT DATE: 20220728
